FAERS Safety Report 9516222 (Version 1)
Quarter: 2013Q3

REPORT INFORMATION
  Report Type: Spontaneous
  Country: TR (occurrence: None)
  Receive Date: 20130909
  Receipt Date: 20130909
  Transmission Date: 20140515
  Serious: Yes (Other)
  Sender: FDA-Public Use
  Company Number: SYM-2013-10459

PATIENT
  Sex: 0

DRUGS (4)
  1. FLUOROURACIL (FLUOROURACIL) (FLUOROURACIL) [Suspect]
     Indication: METASTATIC GASTRIC CANCER
     Dosage: 400 MG/M2, EVERY OTHER WEEK, INTRAVENOUS BOLUS
     Route: 040
  2. DOCETAXEL [Suspect]
     Indication: METASTATIC GASTRIC CANCER
  3. CISPLATIN (CISPLATIN) (CISPLATIN) [Suspect]
     Dosage: 40 MG/M2 , EVERY OTHER WEEK, INTRAVENOUS (NOT SPECIFIED)
     Route: 042
  4. FOLINIC ACID [Suspect]
     Indication: METASTATIC GASTRIC CANCER
     Dosage: 400 MG/M2 , EVERY OTHER WEEK, INTRAVENOUS (NOT OTHERWISE SPECIFIED)

REACTIONS (1)
  - Neutropenia [None]
